FAERS Safety Report 8985626 (Version 2)
Quarter: 2013Q1

REPORT INFORMATION
  Report Type: Spontaneous
  Country: JP (occurrence: JP)
  Receive Date: 20121226
  Receipt Date: 20130123
  Transmission Date: 20140127
  Serious: No
  Sender: FDA-Public Use
  Company Number: JP-CELGENEUS-087-21660-12122225

PATIENT
  Age: 62 Year
  Sex: Female

DRUGS (4)
  1. ABRAXANE [Suspect]
     Indication: BREAST CANCER METASTATIC
     Dosage: 260 MILLIGRAM/SQ. METER
     Route: 041
  2. ZOMETA [Concomitant]
     Indication: BREAST CANCER METASTATIC
     Route: 065
  3. OXYCONTIN [Concomitant]
     Indication: PRODUCT USED FOR UNKNOWN INDICATION
     Route: 065
  4. OXINORM [Concomitant]
     Indication: PRODUCT USED FOR UNKNOWN INDICATION
     Route: 065

REACTIONS (3)
  - Gastric ulcer [Recovering/Resolving]
  - Neuropathy peripheral [Unknown]
  - Granulocyte count decreased [Recovering/Resolving]
